FAERS Safety Report 25025281 (Version 5)
Quarter: 2025Q4

REPORT INFORMATION
  Report Type: Report from Study
  Country: US (occurrence: US)
  Receive Date: 20250228
  Receipt Date: 20251201
  Transmission Date: 20260117
  Serious: Yes (Death, Hospitalization, Other)
  Sender: ALEXION PHARMACEUTICALS
  Company Number: US-ALXN-A202019258AA

PATIENT
  Age: 42 Year
  Sex: Female

DRUGS (1)
  1. SOLIRIS [Suspect]
     Active Substance: ECULIZUMAB
     Indication: Paroxysmal nocturnal haemoglobinuria
     Dosage: 1200 MILLIGRAM, Q2W
     Route: 065

REACTIONS (4)
  - Progressive multifocal leukoencephalopathy [Fatal]
  - Hemiparesis [Unknown]
  - Cerebrovascular accident [Fatal]
  - Breakthrough haemolysis [Fatal]

NARRATIVE: CASE EVENT DATE: 20201201
